FAERS Safety Report 16691584 (Version 1)
Quarter: 2019Q3

REPORT INFORMATION
  Report Type: Spontaneous
  Country: CA (occurrence: CA)
  Receive Date: 20190812
  Receipt Date: 20190812
  Transmission Date: 20191004
  Serious: Yes (Disabling)
  Sender: FDA-Public Use
  Company Number: CA-TEVA-2019-CA-1089371

PATIENT
  Age: 39 Year
  Sex: Female

DRUGS (4)
  1. XELJANZ [Concomitant]
     Active Substance: TOFACITINIB CITRATE
     Indication: RHEUMATOID ARTHRITIS
     Dosage: 10 MILLIGRAM DAILY;
     Route: 048
  2. ETHINYL ESTRADIOL/LEVONORGESTREL [Concomitant]
     Active Substance: ETHINYL ESTRADIOL\LEVONORGESTREL
  3. VITAMINS /00067501/ [Concomitant]
     Active Substance: VITAMINS
  4. METHOTREXATE. [Suspect]
     Active Substance: METHOTREXATE
     Indication: PRODUCT USED FOR UNKNOWN INDICATION
     Route: 048

REACTIONS (5)
  - Nausea [Unknown]
  - Condition aggravated [Unknown]
  - Product dose omission [Unknown]
  - Eating disorder [Unknown]
  - Loss of personal independence in daily activities [Unknown]
